FAERS Safety Report 8933401 (Version 3)
Quarter: 2013Q1

REPORT INFORMATION
  Report Type: Report from Study
  Country: DE (occurrence: DE)
  Receive Date: 20121128
  Receipt Date: 20130305
  Transmission Date: 20140127
  Serious: Yes (Life-Threatening, Hospitalization, Other)
  Sender: FDA-Public Use
  Company Number: DE-PFIZER INC-2012294658

PATIENT
  Age: 62 Year
  Sex: Female
  Weight: 80 kg

DRUGS (12)
  1. GEMTUZUMAB OZOGAMICIN [Suspect]
     Indication: ACUTE MYELOID LEUKAEMIA
     Dosage: UNK
     Dates: start: 20121013, end: 20121013
  2. IDARUBICIN [Suspect]
     Indication: ACUTE MYELOID LEUKAEMIA
     Dosage: UNK
     Dates: start: 20121013, end: 20121017
  3. CYTARABINE [Suspect]
     Indication: ACUTE MYELOID LEUKAEMIA
     Dosage: UNK
     Dates: start: 20121013, end: 20121019
  4. ETOPOSIDE [Suspect]
     Indication: ACUTE MYELOID LEUKAEMIA
     Dosage: UNK
     Dates: start: 20121013, end: 20121015
  5. TRETINOIN [Concomitant]
     Indication: ACUTE MYELOID LEUKAEMIA
     Dosage: UNK
     Dates: start: 20121019, end: 20121103
  6. FILGRASTIM [Concomitant]
     Indication: ACUTE MYELOID LEUKAEMIA
     Dosage: UNK
     Dates: start: 20121029, end: 20121031
  7. MEROPENEM [Concomitant]
     Indication: COLITIS
     Dosage: 1 G, 3X/DAY
     Route: 042
     Dates: start: 20121005, end: 20121028
  8. MEROPENEM [Concomitant]
     Indication: PYREXIA
  9. ALBUMIN HUMAN [Concomitant]
     Indication: OEDEMA
     Dosage: 100 ML, 1X/DAY
     Route: 042
  10. ALBUMIN HUMAN [Concomitant]
     Indication: HYPOALBUMINAEMIA
  11. SODIUM PHOSPHATE [Concomitant]
     Indication: HYPOKALAEMIA
     Dosage: 50 MMOL, 1X/DAY
     Route: 042
     Dates: start: 20121029, end: 20121103
  12. SODIUM PHOSPHATE [Concomitant]
     Indication: HYPOPHOSPHATAEMIA

REACTIONS (1)
  - Neutropenic colitis [Recovered/Resolved]
